FAERS Safety Report 20425120 (Version 1)
Quarter: 2022Q1

REPORT INFORMATION
  Report Type: Report from Study
  Country: US (occurrence: US)
  Receive Date: 20220204
  Receipt Date: 20220204
  Transmission Date: 20220423
  Serious: No
  Sender: FDA-Public Use
  Company Number: US-EXELIXIS-CABO-21038121

PATIENT
  Sex: Female

DRUGS (30)
  1. CABOMETYX [Suspect]
     Active Substance: CABOZANTINIB S-MALATE
     Indication: Renal cell carcinoma
     Dosage: UNK
     Route: 048
     Dates: start: 20200529, end: 20200530
  2. CABOMETYX [Suspect]
     Active Substance: CABOZANTINIB S-MALATE
     Dosage: 40 MG, QD
     Route: 048
     Dates: start: 20200601
  3. CABOMETYX [Suspect]
     Active Substance: CABOZANTINIB S-MALATE
     Dosage: 20 MG, QD
     Route: 048
     Dates: start: 20200615, end: 20200622
  4. CABOMETYX [Suspect]
     Active Substance: CABOZANTINIB S-MALATE
     Dosage: 40 MG, QD
     Route: 048
  5. ADVAIR HFA [Concomitant]
     Active Substance: FLUTICASONE PROPIONATE\SALMETEROL XINAFOATE
  6. ATIVAN [Concomitant]
     Active Substance: LORAZEPAM
  7. CALCIUM CARBONATE\VITAMIN D [Concomitant]
     Active Substance: CALCIUM CARBONATE\VITAMIN D
  8. EMLA [Concomitant]
     Active Substance: LIDOCAINE\PRILOCAINE
  9. IMODIUM A-D [Concomitant]
     Active Substance: LOPERAMIDE HYDROCHLORIDE
  10. METFORMIN HYDROCHLORIDE [Concomitant]
     Active Substance: METFORMIN HYDROCHLORIDE
  11. METOPROLOL SUCCINATE [Concomitant]
     Active Substance: METOPROLOL SUCCINATE
  12. MYCOSTATIN [Concomitant]
     Active Substance: NYSTATIN
  13. NIFEDIPINE [Concomitant]
     Active Substance: NIFEDIPINE
  14. OMEPRAZOLE [Concomitant]
     Active Substance: OMEPRAZOLE
  15. PRINIVIL [Concomitant]
     Active Substance: LISINOPRIL
  16. TEMOVATE [Concomitant]
     Active Substance: CLOBETASOL PROPIONATE
  17. ALBUTEROL [Concomitant]
     Active Substance: ALBUTEROL
  18. ASPIRIN [Concomitant]
     Active Substance: ASPIRIN
  19. CLOBETASOL [Concomitant]
     Active Substance: CLOBETASOL
  20. PEPCID [Concomitant]
     Active Substance: FAMOTIDINE
  21. FERROUS SULFATE [Concomitant]
     Active Substance: FERROUS SULFATE
  22. FLUTICASONE PROPIONATE\SALMETEROL XINAFOATE [Concomitant]
     Active Substance: FLUTICASONE PROPIONATE\SALMETEROL XINAFOATE
  23. ULTRAVATE [Concomitant]
     Active Substance: HALOBETASOL PROPIONATE
  24. HYDRODIURIL [Concomitant]
     Active Substance: HYDROCHLOROTHIAZIDE
  25. SYNTHROID [Concomitant]
     Active Substance: LEVOTHYROXINE SODIUM
  26. MS CONTIN [Concomitant]
     Active Substance: MORPHINE SULFATE
  27. ZOLOFT [Concomitant]
     Active Substance: SERTRALINE HYDROCHLORIDE
  28. SODIUM BICARBONATE [Concomitant]
     Active Substance: SODIUM BICARBONATE
  29. PROTOPIC [Concomitant]
     Active Substance: TACROLIMUS
  30. FLUZONE [Concomitant]
     Active Substance: INFLUENZA A VIRUS A/CALIFORNIA/7/2009 X-179A (H1N1) ANTIGEN (FORMALDEHYDE INACTIVATED)\INFLUENZA A V

REACTIONS (10)
  - Adverse drug reaction [Unknown]
  - Fatigue [Recovering/Resolving]
  - Chest discomfort [Unknown]
  - Rash [Recovering/Resolving]
  - Arthralgia [Unknown]
  - Diarrhoea [Unknown]
  - Decreased appetite [Unknown]
  - Hypothyroidism [Unknown]
  - Depression [Unknown]
  - Metastases to lung [Unknown]
